FAERS Safety Report 18375821 (Version 1)
Quarter: 2020Q4

REPORT INFORMATION
  Report Type: Spontaneous
  Country: US (occurrence: US)
  Receive Date: 20201009
  Receipt Date: 20201009
  Transmission Date: 20210114
  Serious: No
  Sender: FDA-Public Use
  Company Number: None

PATIENT
  Age: 47 Year
  Sex: Female
  Weight: 54.9 kg

DRUGS (1)
  1. MYRBETRIQ [Suspect]
     Active Substance: MIRABEGRON
     Indication: HYPERTONIC BLADDER
     Route: 048
     Dates: start: 20200925, end: 20201007

REACTIONS (4)
  - Back pain [None]
  - Vulvovaginitis [None]
  - Headache [None]
  - Heart rate increased [None]

NARRATIVE: CASE EVENT DATE: 20200925
